FAERS Safety Report 8511916-9 (Version None)
Quarter: 2012Q3

REPORT INFORMATION
  Report Type: 
  Country: None (occurrence: None)
  Receive Date: 20120716
  Receipt Date: 20120713
  Transmission Date: 20120928
  Serious: Yes (Other)
  Sender: FDA-Public Use
  Company Number: PHFR2012GB002156

PATIENT
  Sex: Female
  Weight: 65 kg

DRUGS (8)
  1. ARIPIPRAZOLE [Concomitant]
     Dosage: 15 MG, DAILY
     Route: 048
  2. CLOZARIL [Suspect]
     Dosage: 325 MG, UNK
  3. HYOSCINE BUTYLBROMIDE [Concomitant]
     Indication: SALIVARY HYPERSECRETION
     Dosage: 900 MG, DAILY
     Route: 048
  4. SIMVASTATIN [Concomitant]
     Indication: BLOOD CHOLESTEROL INCREASED
     Dosage: 40 MG, UNK
     Route: 048
  5. LITHIUM CARBONATE [Concomitant]
     Indication: AFFECTIVE DISORDER
     Dosage: 600 MG,DAILY
     Route: 048
     Dates: end: 20120516
  6. VALPROATE SODIUM [Concomitant]
     Indication: AFFECTIVE DISORDER
     Dosage: 2.4 G, DAILY
     Route: 048
  7. CLOZARIL [Suspect]
     Indication: SCHIZOPHRENIA
     Route: 048
     Dates: start: 20080730
  8. LANSOPRAZOLE [Concomitant]
     Indication: GASTRITIS
     Dosage: 30 MG, UNK
     Route: 048

REACTIONS (8)
  - HYPERTENSION [None]
  - GLOMERULAR FILTRATION RATE DECREASED [None]
  - PLATELET COUNT DECREASED [None]
  - TRANSIENT ISCHAEMIC ATTACK [None]
  - RENAL IMPAIRMENT [None]
  - TACHYCARDIA [None]
  - BLOOD CREATININE INCREASED [None]
  - HYPERCHOLESTEROLAEMIA [None]
